FAERS Safety Report 8847121 (Version 2)
Quarter: 2012Q4

REPORT INFORMATION
  Report Type: 
  Country: US (occurrence: US)
  Receive Date: 20121018
  Receipt Date: 20121207
  Transmission Date: 20130627
  Serious: Yes (Other)
  Sender: FDA-Public Use
  Company Number: US-BAYER-2012-106862

PATIENT
  Age: 27 Year
  Sex: Female
  Weight: 82.99 kg

DRUGS (2)
  1. MIRENA [Suspect]
     Indication: CONTRACEPTION
     Dosage: Daily dose 20 ?g
     Route: 015
     Dates: start: 20120808, end: 20120808
  2. MIRENA [Suspect]
     Indication: CONTRACEPTION
     Dosage: 20 mcg/24hr, CONT
     Route: 015
     Dates: start: 20120808

REACTIONS (3)
  - Device dislocation [Recovered/Resolved]
  - Complication of device insertion [None]
  - Device difficult to use [None]
